FAERS Safety Report 11041994 (Version 2)
Quarter: 2015Q2

REPORT INFORMATION
  Report Type: Spontaneous
  Country: US (occurrence: US)
  Receive Date: 20150416
  Receipt Date: 20150525
  Transmission Date: 20150821
  Serious: No
  Sender: FDA-Public Use
  Company Number: US-JNJFOC-20131104528

PATIENT
  Sex: Female
  Weight: 83.01 kg

DRUGS (29)
  1. XARELTO [Suspect]
     Active Substance: RIVAROXABAN
     Indication: DEEP VEIN THROMBOSIS
     Route: 048
     Dates: start: 2012
  2. ZOLOFT [Concomitant]
     Active Substance: SERTRALINE HYDROCHLORIDE
     Route: 048
  3. ACYCLOVIR. [Concomitant]
     Active Substance: ACYCLOVIR
     Indication: PROPHYLAXIS
     Route: 048
  4. AMILORIDE HCL [Concomitant]
     Active Substance: AMILORIDE HYDROCHLORIDE
     Route: 048
  5. GENASOFT PLUS [Concomitant]
     Route: 048
  6. SPIRONOLACTONE. [Concomitant]
     Active Substance: SPIRONOLACTONE
     Route: 048
  7. TOPAMAX [Concomitant]
     Active Substance: TOPIRAMATE
     Route: 048
  8. FLUNISOLIDE. [Concomitant]
     Active Substance: FLUNISOLIDE
     Indication: RHINITIS
     Route: 045
  9. CARAFATE [Concomitant]
     Active Substance: SUCRALFATE
     Indication: ABDOMINAL PAIN UPPER
     Route: 048
  10. VALTREX [Concomitant]
     Active Substance: VALACYCLOVIR HYDROCHLORIDE
     Route: 048
  11. DICYCLOMINE [Concomitant]
     Active Substance: DICYCLOMINE HYDROCHLORIDE
     Indication: DYSPEPSIA
     Route: 048
  12. OMEPRAZOLE. [Concomitant]
     Active Substance: OMEPRAZOLE
     Route: 048
  13. CALCIUM CITRATE + VITAMIN D [Concomitant]
     Route: 048
  14. DYMISTA [Concomitant]
     Active Substance: AZELASTINE HYDROCHLORIDE\FLUTICASONE PROPIONATE
     Route: 045
  15. LORAZEPAM. [Concomitant]
     Active Substance: LORAZEPAM
     Indication: SLEEP DISORDER THERAPY
  16. FUROSEMIDE. [Concomitant]
     Active Substance: FUROSEMIDE
     Route: 048
  17. POTASSIUM CHLORIDE. [Concomitant]
     Active Substance: POTASSIUM CHLORIDE
     Route: 048
  18. ZOVIRAX [Concomitant]
     Active Substance: ACYCLOVIR
     Indication: RASH
  19. NYSTATIN/TRIAMCINOLONE [Concomitant]
     Active Substance: NYSTATIN\TRIAMCINOLONE
     Route: 003
  20. ALBUTEROL. [Concomitant]
     Active Substance: ALBUTEROL
     Indication: CHEST DISCOMFORT
     Route: 055
  21. ALBUTEROL SULPHATE [Concomitant]
     Active Substance: ALBUTEROL
     Indication: DYSPNOEA
     Route: 055
  22. LEVOXYL [Concomitant]
     Active Substance: LEVOTHYROXINE SODIUM
     Route: 048
  23. VITAMIN D [Concomitant]
     Active Substance: CHOLECALCIFEROL
     Route: 048
  24. ALBUTEROL. [Concomitant]
     Active Substance: ALBUTEROL
     Indication: DYSPNOEA
     Route: 055
  25. MS CONTIN [Concomitant]
     Active Substance: MORPHINE SULFATE
     Route: 048
  26. TRACLEER [Concomitant]
     Active Substance: BOSENTAN\BOSENTAN MONOHYDRATE
     Route: 048
  27. XARELTO [Suspect]
     Active Substance: RIVAROXABAN
     Indication: PULMONARY EMBOLISM
     Route: 048
     Dates: start: 2012
  28. NIFEDIPINE ER [Concomitant]
     Active Substance: NIFEDIPINE
     Route: 048
  29. VITAMINE [Concomitant]
     Route: 048

REACTIONS (1)
  - Contusion [Recovered/Resolved]
